FAERS Safety Report 9200654 (Version 1)
Quarter: 2013Q1

REPORT INFORMATION
  Report Type: Report from Study
  Country: DE (occurrence: DE)
  Receive Date: 20130331
  Receipt Date: 20130331
  Transmission Date: 20140127
  Serious: Yes (Hospitalization)
  Sender: FDA-Public Use
  Company Number: DE-UCBSA-081467

PATIENT
  Age: 54 Year
  Sex: Female

DRUGS (5)
  1. VIMPAT [Suspect]
     Indication: EPILEPSY
     Dates: start: 20110813
  2. VIMPAT [Suspect]
     Indication: EPILEPSY
     Dosage: 200 MG/DAY
  3. ESLICARBAZEPINE [Concomitant]
  4. TOPIRAMATE [Concomitant]
     Dosage: 400 MG/DAY
  5. TOPIRAMATE [Concomitant]
     Dosage: 350 MG/DAY

REACTIONS (2)
  - Grand mal convulsion [Unknown]
  - Epilepsy [Unknown]
